FAERS Safety Report 13198238 (Version 2)
Quarter: 2017Q2

REPORT INFORMATION
  Report Type: Spontaneous
  Country: US (occurrence: US)
  Receive Date: 20170208
  Receipt Date: 20170609
  Transmission Date: 20170830
  Serious: Yes (Life-Threatening, Hospitalization, Other)
  Sender: FDA-Public Use
  Company Number: US-AMGEN-USASP2017003829

PATIENT
  Sex: Female

DRUGS (2)
  1. TOPOTECAN [Concomitant]
     Active Substance: TOPOTECAN HYDROCHLORIDE
     Dosage: UNK
  2. NEULASTA [Suspect]
     Active Substance: PEGFILGRASTIM
     Indication: NEUTROPENIA
     Dosage: 6 MG, UNK
     Route: 065

REACTIONS (1)
  - Acute respiratory distress syndrome [Not Recovered/Not Resolved]
